FAERS Safety Report 16003484 (Version 1)
Quarter: 2019Q1

REPORT INFORMATION
  Report Type: Spontaneous
  Country: FR (occurrence: FR)
  Receive Date: 20190226
  Receipt Date: 20190226
  Transmission Date: 20190418
  Serious: Yes (Life-Threatening)
  Sender: FDA-Public Use
  Company Number: FR-TEVA-2019-FR-1015427

PATIENT
  Age: 34 Year
  Sex: Male

DRUGS (2)
  1. ARACYTINE [Suspect]
     Active Substance: CYTARABINE
     Route: 042
     Dates: start: 20140113
  2. ETOPOSIDE. [Suspect]
     Active Substance: ETOPOSIDE
     Route: 042
     Dates: start: 20140113

REACTIONS (1)
  - Aplasia [Recovered/Resolved]

NARRATIVE: CASE EVENT DATE: 20140123
